FAERS Safety Report 4525889-7 (Version None)
Quarter: 2004Q4

REPORT INFORMATION
  Report Type: 
  Country: None (occurrence: None)
  Receive Date: 20041213
  Receipt Date: 20041209
  Transmission Date: 20050328
  Serious: Yes (Life-Threatening)
  Sender: FDA-Public Use
  Company Number: PHBS2004CH16569

PATIENT
  Age: 17 Year
  Sex: Female

DRUGS (3)
  1. CLOPENTHIXOL [Concomitant]
     Dosage: 5 MG/D
     Route: 065
  2. CLOZAPINE [Suspect]
     Indication: MANIA
  3. VALPROATE SODIUM [Concomitant]
     Dosage: 1500 MG/D

REACTIONS (21)
  - ABDOMINAL PAIN UPPER [None]
  - APPENDICECTOMY [None]
  - APPENDICITIS [None]
  - C-REACTIVE PROTEIN INCREASED [None]
  - CHEST PAIN [None]
  - DIARRHOEA [None]
  - ELECTROCARDIOGRAM T WAVE INVERSION [None]
  - ENTEROCOLITIS [None]
  - EOSINOPHILIA [None]
  - EPIGASTRIC DISCOMFORT [None]
  - GAMMA-GLUTAMYLTRANSFERASE INCREASED [None]
  - LEUKOCYTOSIS [None]
  - NAUSEA [None]
  - NORMOCHROMIC NORMOCYTIC ANAEMIA [None]
  - PERICARDIAL EFFUSION [None]
  - PERICARDITIS [None]
  - POLYSEROSITIS [None]
  - PYREXIA [None]
  - THROMBOCYTHAEMIA [None]
  - TROPONIN INCREASED [None]
  - VOMITING [None]
